FAERS Safety Report 19084541 (Version 2)
Quarter: 2021Q2

REPORT INFORMATION
  Report Type: Spontaneous
  Country: US (occurrence: US)
  Receive Date: 20210401
  Receipt Date: 20210413
  Transmission Date: 20210717
  Serious: No
  Sender: FDA-Public Use
  Company Number: US-IBSA PHARMA-2020-IBS-00757

PATIENT
  Age: 63 Year

DRUGS (15)
  1. DICLOFENAC EPOLAMINE [Suspect]
     Active Substance: DICLOFENAC EPOLAMINE
  2. COLESEVELAM [Suspect]
     Active Substance: COLESEVELAM
  3. GLUCOSE [Suspect]
     Active Substance: DEXTROSE
  4. NICKEL [Suspect]
     Active Substance: NICKEL
  5. PSYLLIUM FIBRE [Suspect]
     Active Substance: HERBALS\PLANTAGO OVATA SEED COAT
  6. PALLADIUM [Suspect]
     Active Substance: PALLADIUM
  7. CODEINE [Suspect]
     Active Substance: CODEINE
  8. SUCROSE [Suspect]
     Active Substance: SUCROSE
  9. NIACIN. [Suspect]
     Active Substance: NIACIN
  10. THIMEROSAL [Suspect]
     Active Substance: THIMEROSAL
  11. TRIMETHOPRIM SULFAMETHOXAZOLE [Suspect]
     Active Substance: SULFAMETHOXAZOLE\TRIMETHOPRIM
  12. NABUMETONE. [Suspect]
     Active Substance: NABUMETONE
  13. TRAMADOL. [Suspect]
     Active Substance: TRAMADOL
  14. COBALT [Suspect]
     Active Substance: COBALT
  15. PIOGLITAZONE. [Suspect]
     Active Substance: PIOGLITAZONE

REACTIONS (1)
  - Drug hypersensitivity [Unknown]
